FAERS Safety Report 18291230 (Version 2)
Quarter: 2022Q2

REPORT INFORMATION
  Report Type: Spontaneous
  Country: JP (occurrence: JP)
  Receive Date: 20200921
  Receipt Date: 20220530
  Transmission Date: 20220721
  Serious: Yes (Hospitalization, Disabling, Other)
  Sender: FDA-Public Use
  Company Number: JP-ACTELION-A-CH2019-188408

PATIENT
  Age: 84 Year
  Sex: Male
  Weight: 45 kg

DRUGS (9)
  1. UPTRAVI [Suspect]
     Active Substance: SELEXIPAG
     Indication: Pulmonary arterial hypertension
     Dosage: 0.2 MG, QD
     Route: 048
     Dates: start: 20181115, end: 20190503
  2. FUROSEMIDE [Concomitant]
     Active Substance: FUROSEMIDE
     Indication: Cardiac failure
     Dosage: UNK
     Dates: start: 20181105
  3. FUROSEMIDE [Concomitant]
     Active Substance: FUROSEMIDE
  4. SPIRONOLACTONE [Concomitant]
     Active Substance: SPIRONOLACTONE
     Indication: Cardiac failure
     Dosage: 25 MG, QD
     Dates: start: 20181105
  5. ASPIRIN [Concomitant]
     Active Substance: ASPIRIN
     Dosage: 81 MG, QD
     Dates: start: 20181105
  6. ASPIRIN\LANSOPRAZOLE [Concomitant]
     Active Substance: ASPIRIN\LANSOPRAZOLE
  7. ROSUVASTATIN CALCIUM [Concomitant]
     Active Substance: ROSUVASTATIN CALCIUM
  8. FEBUXOSTAT [Concomitant]
     Active Substance: FEBUXOSTAT
  9. CILOSTAZOL [Concomitant]
     Active Substance: CILOSTAZOL
     Dates: end: 20190807

REACTIONS (4)
  - Cerebral infarction [Unknown]
  - Hemiplegia [Unknown]
  - Sensory disturbance [Unknown]
  - Carotid artery occlusion [Unknown]

NARRATIVE: CASE EVENT DATE: 20190210
